FAERS Safety Report 18807866 (Version 1)
Quarter: 2021Q1

REPORT INFORMATION
  Report Type: Spontaneous
  Country: US (occurrence: US)
  Receive Date: 20210129
  Receipt Date: 20210129
  Transmission Date: 20210419
  Serious: Yes (Hospitalization)
  Sender: FDA-Public Use
  Company Number: US-ELI_LILLY_AND_COMPANY-US202101007797

PATIENT
  Age: 67 Year
  Sex: Male
  Weight: 113.4 kg

DRUGS (1)
  1. BAMLANIVIMAB 700MG [Suspect]
     Active Substance: BAMLANIVIMAB
     Indication: COVID-19
     Dosage: 700 MG, SINGLE
     Route: 042
     Dates: start: 20210110, end: 20210110

REACTIONS (2)
  - Urinary incontinence [Unknown]
  - Confusional state [Unknown]

NARRATIVE: CASE EVENT DATE: 20210110
